FAERS Safety Report 6570477-4 (Version None)
Quarter: 2010Q1

REPORT INFORMATION
  Report Type: 
  Country: None (occurrence: None)
  Receive Date: 20100204
  Receipt Date: 20090831
  Transmission Date: 20100710
  Serious: Yes (Hospitalization, Other)
  Sender: FDA-Public Use
  Company Number: A0805188A

PATIENT

DRUGS (1)
  1. ARIXTRA [Suspect]
     Route: 058

REACTIONS (3)
  - INCISION SITE HAEMORRHAGE [None]
  - POST PROCEDURAL HAEMORRHAGE [None]
  - SURGERY [None]
